FAERS Safety Report 7014464-0 (Version None)
Quarter: 2010Q3

REPORT INFORMATION
  Report Type: 
  Country: None (occurrence: None)
  Receive Date: 20100922
  Receipt Date: 20100914
  Transmission Date: 20110219
  Serious: Yes (Other)
  Sender: FDA-Public Use
  Company Number: 2010MA002619

PATIENT

DRUGS (1)
  1. METOCLOPRAMIDE [Suspect]
     Dosage: ; PO
     Route: 048
     Dates: start: 20040301, end: 20080501

REACTIONS (4)
  - ECONOMIC PROBLEM [None]
  - EMOTIONAL DISORDER [None]
  - EXTRAPYRAMIDAL DISORDER [None]
  - TARDIVE DYSKINESIA [None]
